FAERS Safety Report 6695149-7 (Version None)
Quarter: 2010Q2

REPORT INFORMATION
  Report Type: 
  Country: None (occurrence: None)
  Receive Date: 20100423
  Receipt Date: 20100412
  Transmission Date: 20101027
  Serious: Yes (Disabling)
  Sender: FDA-Public Use
  Company Number: FR-GENENTECH-297987

PATIENT
  Sex: Male

DRUGS (13)
  1. MABTHERA [Suspect]
     Indication: CHRONIC LYMPHOCYTIC LEUKAEMIA
     Route: 042
     Dates: start: 20090203
  2. MABTHERA [Suspect]
     Route: 042
  3. MABTHERA [Suspect]
     Dosage: 1 INJECTION PER MONTH
     Route: 042
     Dates: end: 20090623
  4. BENDAMUSTINE [Concomitant]
     Indication: CHRONIC LYMPHOCYTIC LEUKAEMIA
     Dosage: 6 CYCLES PERFORMED, 70 MG/M2 DURING 2 DAYS EVERY 28 DAYS
     Route: 042
     Dates: start: 20090101, end: 20090624
  5. BACTRIM DS [Concomitant]
     Indication: DRUG USE FOR UNKNOWN INDICATION
     Dosage: UNK
     Route: 048
  6. BACTRIM DS [Concomitant]
     Dosage: RCVD FOR MORE THAN AN YEAR
     Route: 048
  7. LEDERFOLINE [Concomitant]
     Indication: DRUG USE FOR UNKNOWN INDICATION
     Route: 048
  8. LEDERFOLINE [Concomitant]
     Dosage: RCVD FOR MORE THAN AN YEAR
     Route: 048
  9. ZELITREX [Concomitant]
     Indication: DRUG USE FOR UNKNOWN INDICATION
     Route: 048
  10. ZELITREX [Concomitant]
     Dosage: RCVD FOR MORE THAN AN YEAR
     Route: 048
  11. METFORMIN [Concomitant]
     Indication: TYPE 2 DIABETES MELLITUS
     Route: 048
  12. METFORMIN HCL [Concomitant]
     Dosage: RCVD FOR MORE THAN AN YEAR
     Route: 048
  13. GRANOCYTE 34 [Concomitant]

REACTIONS (1)
  - OPTIC NEUROPATHY [None]
